FAERS Safety Report 7134658-3 (Version None)
Quarter: 2010Q4

REPORT INFORMATION
  Report Type: 
  Country: None (occurrence: None)
  Receive Date: 20101203
  Receipt Date: 20101119
  Transmission Date: 20110411
  Serious: Yes (Hospitalization)
  Sender: FDA-Public Use
  Company Number: US-ELI_LILLY_AND_COMPANY-US201011006342

PATIENT
  Age: 48 Year
  Sex: Male

DRUGS (7)
  1. CYMBALTA [Suspect]
     Indication: DEPRESSION
     Dosage: 120 MG, UNKNOWN
  2. PROZAC [Suspect]
     Indication: DEPRESSION
     Dosage: 1 D/F, 2/D
  3. WELLBUTRIN [Concomitant]
     Indication: DEPRESSION
     Dosage: 500 MG, UNKNOWN
  4. SEROQUEL [Concomitant]
     Indication: DEPRESSION
     Dosage: 1 D/F, 2/D
  5. SEROQUEL [Concomitant]
     Dosage: 300 MG, UNK
  6. KLONOPIN [Concomitant]
     Dosage: 1 MG, UNKNOWN
  7. KLONOPIN [Concomitant]
     Dosage: 0.5 MG, UNKNOWN

REACTIONS (3)
  - ABNORMAL BEHAVIOUR [None]
  - COGNITIVE DISORDER [None]
  - INTENTIONAL SELF-INJURY [None]
